FAERS Safety Report 6935847-0 (Version None)
Quarter: 2010Q3

REPORT INFORMATION
  Report Type: 
  Country: None (occurrence: None)
  Receive Date: 20100823
  Receipt Date: 20100806
  Transmission Date: 20110219
  Serious: Yes (Hospitalization)
  Sender: FDA-Public Use
  Company Number: IT-BAYER-201035084GPV

PATIENT
  Age: 66 Year
  Sex: Male

DRUGS (3)
  1. NEXAVAR [Suspect]
     Indication: HEPATIC NEOPLASM MALIGNANT
     Route: 048
     Dates: start: 20090601, end: 20100110
  2. LASIX [Concomitant]
     Route: 048
  3. BARACLUDE [Concomitant]

REACTIONS (2)
  - BILIARY COLIC [None]
  - ELECTROLYTE IMBALANCE [None]
